FAERS Safety Report 4506555-0 (Version None)
Quarter: 2004Q4

REPORT INFORMATION
  Report Type: 
  Country: None (occurrence: None)
  Receive Date: 20041122
  Receipt Date: 20040323
  Transmission Date: 20050328
  Serious: Yes (Other)
  Sender: FDA-Public Use
  Company Number: 200412270US

PATIENT
  Age: 69 Year
  Sex: Female

DRUGS (5)
  1. AMARYL [Suspect]
     Indication: DIABETES MELLITUS NON-INSULIN-DEPENDENT
     Dosage: DOSE: UNK
  2. AVANDIA [Concomitant]
     Dosage: DOSE: UNK
  3. GLUCOPHAGE [Concomitant]
     Dosage: DOSE: UNK
  4. LIPITOR [Concomitant]
     Dosage: DOSE: UNK
  5. DIOVAN [Concomitant]
     Dosage: DOSE: UNK

REACTIONS (3)
  - GLUCOSE-6-PHOSPHATE DEHYDROGENASE DEFICIENCY [None]
  - HAEMOLYTIC ANAEMIA [None]
  - MULTIPLE MYELOMA [None]
